FAERS Safety Report 8161691-5 (Version None)
Quarter: 2012Q1

REPORT INFORMATION
  Report Type: 
  Country: None (occurrence: None)
  Receive Date: 20120224
  Receipt Date: 20120214
  Transmission Date: 20120608
  Serious: Yes (Hospitalization)
  Sender: FDA-Public Use
  Company Number: US-JNJFOC-20120207981

PATIENT
  Sex: Female
  Weight: 113.4 kg

DRUGS (2)
  1. REMICADE [Suspect]
     Dosage: ONCE EVERY 7-8 WEEKS
     Route: 042
     Dates: start: 20050101
  2. REMICADE [Suspect]
     Indication: RHEUMATOID ARTHRITIS
     Route: 042
     Dates: start: 20000101, end: 20020101

REACTIONS (3)
  - SPINAL COLUMN STENOSIS [None]
  - NASOPHARYNGITIS [None]
  - DRUG INEFFECTIVE [None]
